FAERS Safety Report 13762369 (Version 1)
Quarter: 2017Q3

REPORT INFORMATION
  Report Type: Spontaneous
  Country: US (occurrence: US)
  Receive Date: 20170718
  Receipt Date: 20170718
  Transmission Date: 20171127
  Serious: No
  Sender: FDA-Public Use
  Company Number: US-PFIZER INC-2017303146

PATIENT
  Sex: Female

DRUGS (2)
  1. SULFASALAZINE. [Suspect]
     Active Substance: SULFASALAZINE
     Dosage: 1500 MG, 2X/DAY
  2. CELEBREX [Suspect]
     Active Substance: CELECOXIB
     Dosage: 200 MG, 2X/DAY

REACTIONS (18)
  - Joint swelling [Unknown]
  - Skin exfoliation [Unknown]
  - Low density lipoprotein increased [Unknown]
  - Blood potassium decreased [Unknown]
  - Lymphocyte count increased [Unknown]
  - Alopecia [Unknown]
  - Arthropathy [Unknown]
  - Blood cholesterol increased [Unknown]
  - Arthralgia [Unknown]
  - Erythema [Unknown]
  - White blood cell count decreased [Unknown]
  - Musculoskeletal stiffness [Unknown]
  - Red blood cell sedimentation rate increased [Unknown]
  - Dry skin [Unknown]
  - Synovitis [Unknown]
  - Pain in extremity [Unknown]
  - Weight decreased [Unknown]
  - Abdominal hernia [Unknown]
